FAERS Safety Report 8478590-1 (Version None)
Quarter: 2012Q2

REPORT INFORMATION
  Report Type: 
  Country: None (occurrence: None)
  Receive Date: 20120629
  Receipt Date: 20120627
  Transmission Date: 20120825
  Serious: Yes (Death)
  Sender: FDA-Public Use
  Company Number: PHHY2012TR054671

PATIENT
  Sex: Male

DRUGS (3)
  1. PROPRANOLOL [Suspect]
     Indication: HAEMANGIOMA
     Dosage: 2 MG/KG, UNK
  2. PREDNISONE TAB [Suspect]
     Indication: HAEMANGIOMA
  3. VINCRISTINE [Suspect]

REACTIONS (4)
  - HAEMANGIOMA-THROMBOCYTOPENIA SYNDROME [None]
  - DISSEMINATED INTRAVASCULAR COAGULATION [None]
  - MULTI-ORGAN FAILURE [None]
  - DRUG INEFFECTIVE [None]
